FAERS Safety Report 5088470-X (Version None)
Quarter: 2006Q3

REPORT INFORMATION
  Report Type: 
  Country: None (occurrence: None)
  Receive Date: 20060823
  Receipt Date: 20060823
  Transmission Date: 20061208
  Serious: Yes (Other)
  Sender: FDA-Public Use
  Company Number: None

PATIENT
  Sex: Female
  Weight: 113.3993 kg

DRUGS (2)
  1. CRESTOR [Suspect]
     Indication: HYPERLIPIDAEMIA
     Dosage: 10 MG   ONE QD  ORAL
     Route: 048
     Dates: start: 20040101, end: 20060101
  2. ZETIA [Suspect]
     Indication: HYPERLIPIDAEMIA
     Dosage: 10 MG  ONE QD  ORAL
     Route: 048
     Dates: start: 20050401, end: 20060101

REACTIONS (3)
  - ARTHRALGIA [None]
  - CHROMATURIA [None]
  - MUSCULAR WEAKNESS [None]
